FAERS Safety Report 7478416-9 (Version None)
Quarter: 2011Q2

REPORT INFORMATION
  Report Type: 
  Country: None (occurrence: None)
  Receive Date: 20110513
  Receipt Date: 20091113
  Transmission Date: 20111010
  Serious: No
  Sender: FDA-Public Use
  Company Number: US-PFIZER INC-2009299327

PATIENT
  Age: 23 Year
  Sex: Female

DRUGS (1)
  1. SULFASALAZINE [Suspect]
     Indication: DIARRHOEA
     Dosage: 500 MG, 2X/DAY
     Dates: start: 20091101, end: 20091101

REACTIONS (1)
  - NAUSEA [None]
